FAERS Safety Report 9527955 (Version 1)
Quarter: 2013Q3

REPORT INFORMATION
  Report Type: Spontaneous
  Country: FR (occurrence: None)
  Receive Date: 20130913
  Receipt Date: 20130913
  Transmission Date: 20140515
  Serious: Yes (Other)
  Sender: FDA-Public Use
  Company Number: ENTC2013-0318

PATIENT
  Sex: Female

DRUGS (3)
  1. STALEVO [Suspect]
     Indication: PARKINSON^S DISEASE
     Dosage: 150/37.5/200 MG
  2. LEVOTHYROX [Concomitant]
  3. XANAX [Concomitant]

REACTIONS (3)
  - Tooth discolouration [None]
  - Tooth loss [None]
  - Chromaturia [None]
